FAERS Safety Report 7915878-4 (Version None)
Quarter: 2011Q4

REPORT INFORMATION
  Report Type: 
  Country: None (occurrence: None)
  Receive Date: 20111115
  Receipt Date: 20111109
  Transmission Date: 20120403
  Serious: Yes (Other)
  Sender: FDA-Public Use
  Company Number: US-GILEAD-2011-0039350

PATIENT
  Age: 36 Year
  Sex: Female

DRUGS (3)
  1. EMTRICITABINE/TENOFOVIR DISOPROXIL FUMARATE [Suspect]
     Indication: HIV INFECTION
     Dosage: UNK
     Dates: start: 20100224, end: 20110224
  2. FLUOXETINE HCL [Concomitant]
     Dates: start: 20101109
  3. OLANZAPINE [Concomitant]
     Dates: start: 20101109

REACTIONS (1)
  - ABORTION SPONTANEOUS [None]
